FAERS Safety Report 7447069-8 (Version None)
Quarter: 2011Q2

REPORT INFORMATION
  Report Type: 
  Country: None (occurrence: None)
  Receive Date: 20110429
  Receipt Date: 20110425
  Transmission Date: 20111010
  Serious: Yes (Hospitalization, Other)
  Sender: FDA-Public Use
  Company Number: ES-ABBOTT-11P-144-0715153-00

PATIENT
  Age: 63 Year
  Sex: Male
  Weight: 76 kg

DRUGS (5)
  1. HUMIRA [Suspect]
     Dates: end: 20100601
  2. INFLIXIMAB [Suspect]
     Indication: PSORIASIS
     Dosage: 5 MG/KG IN LOW INFUSION IV
     Route: 042
     Dates: start: 20071123, end: 20091201
  3. ATENOLOL [Concomitant]
     Indication: HYPERTENSION
     Dates: start: 20090601, end: 20101101
  4. HUMIRA [Suspect]
     Indication: PSORIASIS
     Dates: start: 20091201, end: 20091201
  5. HUMIRA [Suspect]

REACTIONS (6)
  - ASTHENIA [None]
  - DECREASED APPETITE [None]
  - ANGIOSARCOMA [None]
  - PAIN [None]
  - HEADACHE [None]
  - WEIGHT DECREASED [None]
